FAERS Safety Report 23677522 (Version 5)
Quarter: 2024Q2

REPORT INFORMATION
  Report Type: Spontaneous
  Country: CO (occurrence: CO)
  Receive Date: 20240327
  Receipt Date: 20240425
  Transmission Date: 20240716
  Serious: No
  Sender: FDA-Public Use
  Company Number: CO-PFIZER INC-PV202400034102

PATIENT
  Age: 15 Year
  Sex: Male

DRUGS (1)
  1. GENOTROPIN [Suspect]
     Active Substance: SOMATROPIN
     Indication: Growth hormone deficiency
     Dosage: 1.7 MG, 1X/DAY
     Route: 058

REACTIONS (2)
  - Device mechanical issue [Unknown]
  - Device leakage [Unknown]
